FAERS Safety Report 15227272 (Version 12)
Quarter: 2021Q1

REPORT INFORMATION
  Report Type: Report from Study
  Country: AT (occurrence: AT)
  Receive Date: 20180801
  Receipt Date: 20210113
  Transmission Date: 20210419
  Serious: Yes (Hospitalization, Other)
  Sender: FDA-Public Use
  Company Number: AT-INCYTE CORPORATION-2018IN007625

PATIENT

DRUGS (17)
  1. PANTOPRAZOL [Concomitant]
     Active Substance: PANTOPRAZOLE SODIUM
     Indication: PROPHYLAXIS
     Dosage: 20 OT, UNK
     Route: 065
     Dates: start: 20170913
  2. ASPIRIN [ACETYLSALICYLIC ACID] [Concomitant]
     Active Substance: ASPIRIN
     Indication: PRODUCT USED FOR UNKNOWN INDICATION
     Dosage: UNK
     Route: 065
  3. JAKAVI [Suspect]
     Active Substance: RUXOLITINIB
     Indication: POLYCYTHAEMIA VERA
     Dosage: 10 MG, BID
     Route: 065
     Dates: start: 20171218, end: 20180103
  4. JAKAVI [Suspect]
     Active Substance: RUXOLITINIB
     Dosage: 3.2 OT
     Route: 048
     Dates: start: 20190801, end: 20190804
  5. JAKAVI [Suspect]
     Active Substance: RUXOLITINIB
     Dosage: 10 OT
     Route: 048
     Dates: start: 20180827, end: 20190129
  6. THROMBO ASS [Concomitant]
     Active Substance: ASPIRIN
     Indication: THROMBOSIS PROPHYLAXIS
     Dosage: 100 MG
     Route: 065
     Dates: start: 20010910
  7. BLOPRESS [Concomitant]
     Active Substance: CANDESARTAN CILEXETIL
     Indication: HYPERTENSION
     Dosage: 16 OT, UNK
     Route: 065
     Dates: start: 20150320, end: 20190725
  8. JAKAVI [Suspect]
     Active Substance: RUXOLITINIB
     Dosage: 10 MG
     Route: 048
     Dates: start: 20180131, end: 20180807
  9. JAKAVI [Suspect]
     Active Substance: RUXOLITINIB
     Dosage: 5 OT
     Route: 048
     Dates: start: 20190522, end: 20190714
  10. JAKAVI [Suspect]
     Active Substance: RUXOLITINIB
     Dosage: 15 MG
     Route: 048
     Dates: start: 20180104, end: 20180130
  11. JAKAVI [Suspect]
     Active Substance: RUXOLITINIB
     Dosage: 5 OT
     Route: 048
     Dates: start: 20190311, end: 20190512
  12. JAKAVI [Suspect]
     Active Substance: RUXOLITINIB
     Dosage: 05 OT
     Route: 048
     Dates: start: 20190513, end: 20190521
  13. CIPRALEX [Concomitant]
     Active Substance: ESCITALOPRAM OXALATE
     Indication: DEPRESSION
     Dosage: 10 OT, UNK
     Route: 065
     Dates: start: 20101013
  14. JAKAVI [Suspect]
     Active Substance: RUXOLITINIB
     Dosage: 10 OT
     Route: 048
     Dates: start: 20190130, end: 20190310
  15. JAKAVI [Suspect]
     Active Substance: RUXOLITINIB
     Dosage: 10 OT
     Route: 048
     Dates: start: 20190715, end: 20190731
  16. JAKAVI [Suspect]
     Active Substance: RUXOLITINIB
     Dosage: 10 OT
     Route: 048
     Dates: start: 20180808, end: 20180826
  17. JAKAVI [Suspect]
     Active Substance: RUXOLITINIB
     Dosage: 5 OT
     Route: 048
     Dates: start: 20190805, end: 20191118

REACTIONS (26)
  - Dyspnoea exertional [Not Recovered/Not Resolved]
  - Sciatica [Unknown]
  - Haematoma muscle [Recovered/Resolved]
  - Anaemia [Not Recovered/Not Resolved]
  - Haematoma [Recovered/Resolved]
  - Haemoglobin decreased [Unknown]
  - Hyperhidrosis [Recovered/Resolved]
  - Paraesthesia [Recovered/Resolved]
  - Pharyngitis [Recovered/Resolved]
  - Peripheral vascular disorder [Recovered/Resolved]
  - Liver function test abnormal [Unknown]
  - Muscle swelling [Unknown]
  - Diarrhoea [Recovered/Resolved]
  - Cardiovascular insufficiency [Not Recovered/Not Resolved]
  - Spinal pain [Unknown]
  - Swelling [Unknown]
  - Back pain [Recovered/Resolved]
  - Paraesthesia [Recovered/Resolved]
  - Pruritus [Recovered/Resolved]
  - White blood cell count increased [Unknown]
  - Blood urea increased [Unknown]
  - General physical health deterioration [Recovered/Resolved]
  - Pruritus [Recovered/Resolved]
  - Acute myeloid leukaemia [Not Recovered/Not Resolved]
  - Activated partial thromboplastin time prolonged [Unknown]
  - Blood creatinine increased [Unknown]

NARRATIVE: CASE EVENT DATE: 20180709
